FAERS Safety Report 6647001-0 (Version None)
Quarter: 2010Q1

REPORT INFORMATION
  Report Type: 
  Country: None (occurrence: None)
  Receive Date: 20100318
  Receipt Date: 20100310
  Transmission Date: 20100710
  Serious: No
  Sender: FDA-Public Use
  Company Number: 20107952

PATIENT
  Sex: Female

DRUGS (1)
  1. LIORESAL [Suspect]
     Indication: MUSCLE SPASTICITY
     Dosage: 229.8 MCG, DAILY, INTRATHECAL
     Route: 037

REACTIONS (5)
  - HYPERTONIA [None]
  - INJURY [None]
  - IRRITABILITY [None]
  - MEDICAL DEVICE COMPLICATION [None]
  - WITHDRAWAL SYNDROME [None]
